APPROVED DRUG PRODUCT: GYNIX
Active Ingredient: CLOTRIMAZOLE
Strength: 100MG
Dosage Form/Route: TABLET;VAGINAL
Application: A073249 | Product #001
Applicant: TEVA PHARMACEUTICALS USA
Approved: Feb 13, 1998 | RLD: No | RS: No | Type: DISCN